FAERS Safety Report 11334289 (Version 2)
Quarter: 2015Q4

REPORT INFORMATION
  Report Type: Report from Study
  Country: US (occurrence: US)
  Receive Date: 20150803
  Receipt Date: 20151012
  Transmission Date: 20160304
  Serious: No
  Sender: FDA-Public Use
  Company Number: US-AMGEN-USASP2015077738

PATIENT
  Age: 70 Year
  Sex: Female

DRUGS (1)
  1. ENBREL [Suspect]
     Active Substance: ETANERCEPT
     Indication: PSORIATIC ARTHROPATHY
     Dosage: UNK
     Route: 065
     Dates: start: 2014

REACTIONS (5)
  - Nasal congestion [Unknown]
  - Unevaluable event [Unknown]
  - Injection site bruising [Recovered/Resolved]
  - Injection site discolouration [Unknown]
  - Sinusitis [Unknown]

NARRATIVE: CASE EVENT DATE: 201506
